FAERS Safety Report 6789811-5 (Version None)
Quarter: 2010Q2

REPORT INFORMATION
  Report Type: 
  Country: None (occurrence: None)
  Receive Date: 20100624
  Receipt Date: 20100610
  Transmission Date: 20101027
  Serious: Yes (Other)
  Sender: FDA-Public Use
  Company Number: PHHY2010DE38548

PATIENT
  Age: 61 Year
  Sex: Female

DRUGS (3)
  1. PROVAS [Suspect]
     Indication: HYPERTENSION
     Dosage: 80 MG, UNK
     Route: 048
     Dates: start: 20090612
  2. VITAMIN B COMPLEX CAP [Concomitant]
  3. AMEU [Concomitant]

REACTIONS (2)
  - COUGH [None]
  - DYSPNOEA [None]
